FAERS Safety Report 8050857-0 (Version None)
Quarter: 2012Q1

REPORT INFORMATION
  Report Type: 
  Country: None (occurrence: None)
  Receive Date: 20120117
  Receipt Date: 20120105
  Transmission Date: 20120608
  Serious: Yes (Death, Other)
  Sender: FDA-Public Use
  Company Number: PHHY2011DE18485

PATIENT
  Age: 76 Year
  Sex: Male

DRUGS (2)
  1. IMATINIB MESYLATE [Suspect]
     Indication: GASTROINTESTINAL STROMAL TUMOUR
     Dosage: UNK
  2. IMATINIB MESYLATE [Suspect]
     Dosage: UNK

REACTIONS (5)
  - DRUG INTOLERANCE [None]
  - CARDIAC FAILURE [None]
  - NEOPLASM PROGRESSION [None]
  - CARDIOMYOPATHY [None]
  - NEOPLASM MALIGNANT [None]
